FAERS Safety Report 11631543 (Version 2)
Quarter: 2015Q4

REPORT INFORMATION
  Report Type: Spontaneous
  Country: US (occurrence: US)
  Receive Date: 20151015
  Receipt Date: 20151030
  Transmission Date: 20160304
  Serious: Yes (Other)
  Sender: FDA-Public Use
  Company Number: US-ROCHE-ITM201505IM015149

PATIENT
  Sex: Female
  Weight: 72.64 kg

DRUGS (1)
  1. ESBRIET [Suspect]
     Active Substance: PIRFENIDONE
     Indication: IDIOPATHIC PULMONARY FIBROSIS
     Dosage: 3 CAPSULES BY MOUTH THREE TIMES A DAY WITH FOOD.
     Route: 048
     Dates: start: 20150601

REACTIONS (7)
  - Diarrhoea [Unknown]
  - Confusional state [Unknown]
  - Headache [Unknown]
  - Thyroid function test abnormal [Unknown]
  - Hallucination [Unknown]
  - Nausea [Unknown]
  - Vomiting [Unknown]
